FAERS Safety Report 22263143 (Version 3)
Quarter: 2023Q2

REPORT INFORMATION
  Report Type: Spontaneous
  Country: US (occurrence: US)
  Receive Date: 20230428
  Receipt Date: 20230529
  Transmission Date: 20230722
  Serious: No
  Sender: FDA-Public Use
  Company Number: US-AIMMUNE THERAPEUTICS, INC.-2023AIMT00380

PATIENT

DRUGS (7)
  1. PALFORZIA [Suspect]
     Active Substance: PEANUT
     Indication: Food allergy
     Dosage: IDE (0.5-6MG), ONCE
     Route: 048
     Dates: start: 20221212, end: 20221212
  2. PALFORZIA [Suspect]
     Active Substance: PEANUT
     Dosage: 120 MG, 1X/DAY
     Route: 048
     Dates: start: 20230327, end: 20230411
  3. PALFORZIA [Suspect]
     Active Substance: PEANUT
     Dosage: 120 MG, ONCE, LAST DOSE PRIOR TO ABDOMINAL PAIN
     Route: 048
     Dates: start: 20230404, end: 20230404
  4. PALFORZIA [Suspect]
     Active Substance: PEANUT
     Dosage: 100 MG, 1X/DAY, DOSE DECREASED
     Route: 048
     Dates: start: 20230412, end: 20230423
  5. PALFORZIA [Suspect]
     Active Substance: PEANUT
     Dosage: 100 MG, ONCE, LAST DOSE PRIOR TO VIRAL COLD
     Route: 048
     Dates: start: 20230421, end: 20230421
  6. PALFORZIA [Suspect]
     Active Substance: PEANUT
     Dosage: 100 MG, 1X/DAY, DOSE RESUMED
     Route: 048
     Dates: start: 20230425, end: 20230505
  7. PALFORZIA [Suspect]
     Active Substance: PEANUT
     Dosage: 120 MG, 1X/DAY, DOSE INCREASED
     Route: 048
     Dates: start: 20230506

REACTIONS (3)
  - Viral infection [Recovered/Resolved]
  - Vomiting [Recovered/Resolved]
  - Abdominal pain [Recovered/Resolved]

NARRATIVE: CASE EVENT DATE: 20230404
